FAERS Safety Report 6687864-6 (Version None)
Quarter: 2010Q2

REPORT INFORMATION
  Report Type: 
  Country: None (occurrence: None)
  Receive Date: 20100409
  Receipt Date: 20091211
  Transmission Date: 20101027
  Serious: Yes (Other)
  Sender: FDA-Public Use
  Company Number: AE  2009-164

PATIENT
  Age: 51 Year
  Sex: Male
  Weight: 75.2971 kg

DRUGS (10)
  1. FAZACLO ODT [Suspect]
     Indication: SCHIZOPHRENIA
     Dosage: 600MG DAILY PO
     Route: 048
     Dates: start: 20070406, end: 20091209
  2. CELEXA [Concomitant]
  3. INVEGA [Concomitant]
  4. PRILOSEC [Concomitant]
  5. TRICOR [Concomitant]
  6. COLACE [Concomitant]
  7. ATIVAN [Concomitant]
  8. MELATONIN [Concomitant]
  9. ABILIFY [Concomitant]
  10. PROLIXIN [Concomitant]

REACTIONS (2)
  - GRANULOCYTOPENIA [None]
  - LEUKOPENIA [None]
